FAERS Safety Report 5830832-4 (Version None)
Quarter: 2008Q3

REPORT INFORMATION
  Report Type: 
  Country: None (occurrence: None)
  Receive Date: 20080801
  Receipt Date: 20071219
  Transmission Date: 20090109
  Serious: Yes (Hospitalization)
  Sender: FDA-Public Use
  Company Number: US-BRISTOL-MYERS SQUIBB COMPANY-14019541

PATIENT
  Age: 83 Year
  Sex: Male

DRUGS (1)
  1. COUMADIN [Suspect]
     Indication: ANEURYSM
     Dosage: DOSE REDUCED TO 7.5MG
     Route: 048
     Dates: start: 19990101

REACTIONS (1)
  - HAEMATURIA [None]
